FAERS Safety Report 6208759-8 (Version None)
Quarter: 2009Q2

REPORT INFORMATION
  Report Type: 
  Country: None (occurrence: None)
  Receive Date: 20090529
  Receipt Date: 20090522
  Transmission Date: 20091009
  Serious: Yes (Death, Life-Threatening, Hospitalization, Other)
  Sender: FDA-Public Use
  Company Number: JP-BRISTOL-MYERS SQUIBB COMPANY-14560973

PATIENT
  Age: 71 Year
  Sex: Male

DRUGS (13)
  1. SPRYCEL [Suspect]
     Indication: CHRONIC MYELOID LEUKAEMIA
     Route: 048
     Dates: start: 20090317, end: 20090318
  2. ORGARAN [Concomitant]
     Route: 042
     Dates: start: 20090310, end: 20090319
  3. DUROTEP [Concomitant]
     Route: 062
     Dates: start: 20090301, end: 20090320
  4. SOLDEM 3A [Concomitant]
     Route: 042
     Dates: start: 20090301, end: 20090320
  5. DORMICUM [Concomitant]
     Route: 042
     Dates: start: 20090305, end: 20090318
  6. PREDONINE [Concomitant]
     Route: 042
     Dates: start: 20090310, end: 20090313
  7. FULCALIQ 2 [Concomitant]
     Dates: start: 20090310, end: 20090319
  8. HEPARIN SODIUM [Concomitant]
     Dosage: HEPARIN NA LOCK
     Route: 042
     Dates: start: 20090301, end: 20090318
  9. ROPION [Concomitant]
     Route: 042
     Dates: start: 20090301, end: 20090317
  10. ISOTONIC SODIUM CHLORIDE [Concomitant]
     Dosage: SOLUTION FORM
     Route: 042
     Dates: start: 20090301, end: 20090320
  11. ADONA [Concomitant]
     Route: 042
     Dates: start: 20090319, end: 20090319
  12. TRANSAMIN [Concomitant]
     Route: 042
     Dates: start: 20090319, end: 20090319
  13. UNASYN [Concomitant]
     Route: 042
     Dates: start: 20090303, end: 20090320

REACTIONS (8)
  - BLOOD CREATININE INCREASED [None]
  - HYPERKALAEMIA [None]
  - HYPERURICAEMIA [None]
  - LARGE INTESTINE CARCINOMA [None]
  - NEUTROPHIL COUNT DECREASED [None]
  - PLATELET COUNT DECREASED [None]
  - PULMONARY HAEMORRHAGE [None]
  - WHITE BLOOD CELL COUNT DECREASED [None]
